FAERS Safety Report 5051801-0 (Version None)
Quarter: 2006Q3

REPORT INFORMATION
  Report Type: 
  Country: None (occurrence: None)
  Receive Date: 20060713
  Receipt Date: 20060713
  Transmission Date: 20061208
  Serious: Yes (Other)
  Sender: FDA-Public Use
  Company Number: None

PATIENT
  Age: 80 Year
  Sex: Male
  Weight: 67.9 kg

DRUGS (1)
  1. ALDACTONE [Suspect]

REACTIONS (1)
  - HYPERKALAEMIA [None]
